FAERS Safety Report 9577051 (Version 1)
Quarter: 2013Q4

REPORT INFORMATION
  Report Type: Spontaneous
  Country: US (occurrence: US)
  Receive Date: 20131001
  Receipt Date: 20131001
  Transmission Date: 20140711
  Serious: No
  Sender: FDA-Public Use
  Company Number: US-AMGEN-USASP2013006409

PATIENT
  Age: 51 Year
  Sex: Female
  Weight: 99.77 kg

DRUGS (12)
  1. ENBREL [Suspect]
     Indication: PSORIATIC ARTHROPATHY
     Dosage: 50 MG, QWK
     Route: 058
  2. METHOTREXATE [Concomitant]
     Dosage: 2.5 MG, UNK
  3. FENOFIBRATE [Concomitant]
     Dosage: 134 MG, UNK
  4. LOVAZA [Concomitant]
     Dosage: 1 G, UNK
  5. METOPROLOL [Concomitant]
     Dosage: 50 MG, UNK
  6. CRESTOR [Concomitant]
     Dosage: 10 MG, UNK
  7. PLAVIX [Concomitant]
     Dosage: 75 MG, UNK
  8. LOSARTAN POTASSIUM [Concomitant]
     Dosage: 100 MG, UNK
  9. VITAMIN D                          /00107901/ [Concomitant]
     Dosage: 1000 UNIT, UNK
  10. FOLIC ACID [Concomitant]
     Dosage: UNK
  11. BABY ASPIRIN [Concomitant]
     Dosage: 81 MG, UNK
  12. TRIAMTERENE/HCTZ [Concomitant]
     Dosage: 25-37.5

REACTIONS (2)
  - Psoriasis [Unknown]
  - Injection site pain [Unknown]
